FAERS Safety Report 7530346-X (Version None)
Quarter: 2011Q2

REPORT INFORMATION
  Report Type: 
  Country: None (occurrence: None)
  Receive Date: 20110607
  Receipt Date: 20110606
  Transmission Date: 20111010
  Serious: Yes (Other)
  Sender: FDA-Public Use
  Company Number: US-UCBSA-023891

PATIENT
  Sex: Male
  Weight: 4.09 kg

DRUGS (6)
  1. KEPPRA [Suspect]
     Route: 064
     Dates: start: 20101005
  2. FLUZONE VACCINE [Concomitant]
     Indication: PREGNANCY
     Dosage: 1 DOSE
     Route: 064
     Dates: start: 20100923
  3. KEPPRA [Suspect]
     Route: 064
     Dates: start: 20110105, end: 20110204
  4. FOLIC ACID [Concomitant]
     Indication: PREGNANCY
     Route: 064
     Dates: end: 20110204
  5. KEPPRA [Suspect]
     Indication: EPILEPSY
     Dosage: PRIOR TO CONCEPTION
     Route: 064
  6. VITAMIN AND MINERAL PRENATAL SUPPLEMENT W/ FOLIC ACID CAP [Concomitant]
     Indication: PREGNANCY
     Dosage: 1 CAPSULE
     Route: 064
     Dates: end: 20110204

REACTIONS (2)
  - HYDRONEPHROSIS [None]
  - DRUG EXPOSURE DURING PREGNANCY [None]
